FAERS Safety Report 14635047 (Version 2)
Quarter: 2018Q1

REPORT INFORMATION
  Report Type: Report from Study
  Country: US (occurrence: US)
  Receive Date: 20180314
  Receipt Date: 20180315
  Transmission Date: 20180509
  Serious: Yes (Death, Hospitalization)
  Sender: FDA-Public Use
  Company Number: US-ASTRAZENECA-2017SF07049

PATIENT
  Age: 687 Month
  Sex: Female

DRUGS (23)
  1. FOLIC ACID. [Concomitant]
     Active Substance: FOLIC ACID
  2. IRON [Concomitant]
     Active Substance: IRON
  3. BROMOCRIPTINE [Concomitant]
     Active Substance: BROMOCRIPTINE
  4. DIPHENHYDRAMINE HYDROCHLORIDE. [Concomitant]
     Active Substance: DIPHENHYDRAMINE HYDROCHLORIDE
  5. TAGRISSO [Suspect]
     Active Substance: OSIMERTINIB
     Indication: METASTASES TO BONE
     Route: 048
     Dates: start: 20171013, end: 201801
  6. PREDNISONE. [Concomitant]
     Active Substance: PREDNISONE
  7. VALACICLOVIR [Concomitant]
     Active Substance: VALACYCLOVIR HYDROCHLORIDE
  8. XARELTO [Concomitant]
     Active Substance: RIVAROXABAN
  9. LEVOFLOXACIN. [Concomitant]
     Active Substance: LEVOFLOXACIN
  10. TAGRISSO [Suspect]
     Active Substance: OSIMERTINIB
     Indication: LUNG NEOPLASM MALIGNANT
     Route: 048
     Dates: start: 20171013, end: 201801
  11. LIDOCAINE. [Concomitant]
     Active Substance: LIDOCAINE
  12. DEXAMETHASONE. [Concomitant]
     Active Substance: DEXAMETHASONE
  13. SYNTHROID [Concomitant]
     Active Substance: LEVOTHYROXINE SODIUM
  14. PAROXETINE. [Concomitant]
     Active Substance: PAROXETINE
  15. MEGESTROL [Concomitant]
     Active Substance: MEGESTROL
  16. TAGRISSO [Suspect]
     Active Substance: OSIMERTINIB
     Indication: METASTASES TO CENTRAL NERVOUS SYSTEM
     Route: 048
     Dates: start: 20171013, end: 201801
  17. CEFUROXIME. [Concomitant]
     Active Substance: CEFUROXIME
  18. ONDANSETRON [Concomitant]
     Active Substance: ONDANSETRON
  19. LORAZEPAM. [Concomitant]
     Active Substance: LORAZEPAM
  20. LEVOTHYROXINE. [Concomitant]
     Active Substance: LEVOTHYROXINE
  21. TYLENOL [Concomitant]
     Active Substance: ACETAMINOPHEN
  22. PANTOPRAZOLE [Concomitant]
     Active Substance: PANTOPRAZOLE
  23. VICODIN [Concomitant]
     Active Substance: ACETAMINOPHEN\HYDROCODONE BITARTRATE

REACTIONS (11)
  - Asthenia [Unknown]
  - Decreased appetite [Not Recovered/Not Resolved]
  - Amnesia [Unknown]
  - Death [Fatal]
  - Vomiting [Unknown]
  - Headache [Unknown]
  - Hemiplegia [Unknown]
  - Diarrhoea [Unknown]
  - Nausea [Not Recovered/Not Resolved]
  - Fatigue [Unknown]
  - Cerebral disorder [Unknown]

NARRATIVE: CASE EVENT DATE: 201711
